FAERS Safety Report 9529436 (Version 1)
Quarter: 2013Q3

REPORT INFORMATION
  Report Type: Report from Study
  Country: AR (occurrence: AR)
  Receive Date: 20130917
  Receipt Date: 20130917
  Transmission Date: 20140515
  Serious: Yes (Other)
  Sender: FDA-Public Use
  Company Number: PHHY2013AR103030

PATIENT
  Age: 48 Year
  Sex: Male

DRUGS (1)
  1. DIOVAN [Suspect]
     Indication: HYPERTENSION
     Dosage: 0.5 TABLET (160 MG), DAILY
     Route: 048
     Dates: start: 201302

REACTIONS (2)
  - Osteochondritis [Recovered/Resolved]
  - Wrong technique in drug usage process [Unknown]
